FAERS Safety Report 22606468 (Version 1)
Quarter: 2023Q2

REPORT INFORMATION
  Report Type: Report from Study
  Country: DE (occurrence: DE)
  Receive Date: 20230615
  Receipt Date: 20230615
  Transmission Date: 20230722
  Serious: Yes (Hospitalization)
  Sender: FDA-Public Use
  Company Number: DE-TAKEDA-2023TUS058151

PATIENT
  Age: 19 Year
  Sex: Male

DRUGS (8)
  1. IDURSULFASE [Suspect]
     Active Substance: IDURSULFASE
     Indication: Mucopolysaccharidosis II
     Dosage: 0.5 MILLIGRAM/KILOGRAM, 1/WEEK
     Route: 042
     Dates: start: 20060927
  2. IDURSULFASE [Suspect]
     Active Substance: IDURSULFASE
     Dosage: 0.41 MILLIGRAM/KILOGRAM, 1/WEEK
     Route: 042
     Dates: start: 20080125, end: 20080619
  3. SODIUM CHLORIDE [Concomitant]
     Active Substance: SODIUM CHLORIDE
     Indication: Chronic obstructive pulmonary disease
     Route: 055
  4. D-fluoretten [Concomitant]
     Indication: Vitamin D decreased
     Dosage: UNK
     Route: 048
     Dates: start: 20061011
  5. MIRTAZAPINE [Concomitant]
     Active Substance: MIRTAZAPINE
     Indication: Sleep disorder
     Dosage: UNK
     Route: 048
     Dates: start: 20061204, end: 2007
  6. Tavor [Concomitant]
     Indication: Sleep disorder
     Dosage: UNK
     Route: 048
     Dates: start: 20061204, end: 2007
  7. FLUOXETINE [Concomitant]
     Active Substance: FLUOXETINE HYDROCHLORIDE
     Indication: Antidepressant therapy
     Dosage: UNK
     Route: 048
     Dates: start: 20070511, end: 20070720
  8. FLUOXETINE [Concomitant]
     Active Substance: FLUOXETINE HYDROCHLORIDE
     Dosage: UNK
     Route: 048
     Dates: start: 20070721

REACTIONS (1)
  - Kyphoscoliosis [Recovered/Resolved]

NARRATIVE: CASE EVENT DATE: 20080619
